FAERS Safety Report 4944763-5 (Version None)
Quarter: 2006Q1

REPORT INFORMATION
  Report Type: 
  Country: None (occurrence: None)
  Receive Date: 20060113
  Receipt Date: 20050606
  Transmission Date: 20060701
  Serious: Yes (Hospitalization, Other)
  Sender: FDA-Public Use
  Company Number: HQWYE455212NOV04

PATIENT
  Age: 48 Year
  Sex: Female

DRUGS (13)
  1. PREMPRO [Suspect]
  2. ALESSE [Suspect]
  3. DEPO-PROVERA [Suspect]
  4. ESTRATEST [Suspect]
  5. PREMARIN [Suspect]
  6. PROVERA [Suspect]
  7. SYNTHROID [Concomitant]
  8. GLUCOPHAGE [Concomitant]
  9. LOPID [Concomitant]
  10. PRAVACHOL [Concomitant]
  11. ATIVAN [Concomitant]
  12. ASCORBIC ACID [Concomitant]
  13. VITAMIN B COMPLEX CAP [Concomitant]

REACTIONS (2)
  - BREAST CANCER [None]
  - CEREBROVASCULAR ACCIDENT [None]
